FAERS Safety Report 8795638 (Version 2)
Quarter: 2012Q4

REPORT INFORMATION
  Report Type: Report from Study
  Country: US (occurrence: US)
  Receive Date: 20120919
  Receipt Date: 20121005
  Transmission Date: 20130627
  Serious: Yes (Hospitalization, Other)
  Sender: FDA-Public Use
  Company Number: US-ABBOTT-12P-163-0980144-00

PATIENT
  Age: 61 None
  Sex: Female

DRUGS (1)
  1. HUMIRA [Suspect]
     Indication: PRODUCT USED FOR UNKNOWN INDICATION
     Route: 058
     Dates: start: 200908

REACTIONS (4)
  - Oxygen saturation decreased [Unknown]
  - Asthma [Unknown]
  - Tooth abscess [Unknown]
  - Drug dose omission [Unknown]
